FAERS Safety Report 9688156 (Version 1)
Quarter: 2013Q4

REPORT INFORMATION
  Report Type: Spontaneous
  Country: US (occurrence: None)
  Receive Date: 20131113
  Receipt Date: 20131113
  Transmission Date: 20140711
  Serious: Yes (Hospitalization, Disabling)
  Sender: FDA-Public Use
  Company Number: None

PATIENT
  Age: 80 Year
  Sex: Male
  Weight: 127.01 kg

DRUGS (1)
  1. FENTANYL [Suspect]
     Indication: PAIN MANAGEMENT
     Dosage: 1 PATCH, AS NEEDED, APPLIED AS MEDICATED PATCH TO SKIN

REACTIONS (7)
  - Drug interaction [None]
  - Cold sweat [None]
  - Feeling hot [None]
  - Application site rash [None]
  - Pain [None]
  - Furuncle [None]
  - Insomnia [None]
